FAERS Safety Report 7206418-6 (Version None)
Quarter: 2011Q1

REPORT INFORMATION
  Report Type: 
  Country: None (occurrence: None)
  Receive Date: 20110103
  Receipt Date: 20101221
  Transmission Date: 20110831
  Serious: Yes (Hospitalization)
  Sender: FDA-Public Use
  Company Number: US-ELI_LILLY_AND_COMPANY-US201011005624

PATIENT
  Sex: Female

DRUGS (2)
  1. METHOTREXATE [Concomitant]
     Dosage: UNK, UNKNOWN
     Route: 065
  2. FORTEO [Suspect]
     Indication: OSTEOPOROSIS
     Dosage: 20 UG, DAILY (1/D)
     Route: 065

REACTIONS (11)
  - SPINAL FRACTURE [None]
  - FEELING ABNORMAL [None]
  - CARDIAC DISORDER [None]
  - VOMITING [None]
  - ULCER HAEMORRHAGE [None]
  - MOBILITY DECREASED [None]
  - HYPOPHAGIA [None]
  - NAUSEA [None]
  - WEIGHT DECREASED [None]
  - BLOOD PRESSURE ABNORMAL [None]
  - PAIN [None]
